FAERS Safety Report 21629266 (Version 1)
Quarter: 2022Q4

REPORT INFORMATION
  Report Type: Spontaneous
  Country: AT (occurrence: AT)
  Receive Date: 20221122
  Receipt Date: 20221122
  Transmission Date: 20230113
  Serious: Yes (Other)
  Sender: FDA-Public Use
  Company Number: AT-JNJFOC-20221130420

PATIENT
  Age: 74 Year
  Sex: Female

DRUGS (2)
  1. DARZALEX [Suspect]
     Active Substance: DARATUMUMAB
     Indication: Plasma cell myeloma
     Route: 065
     Dates: start: 20150826
  2. LENALIDOMIDE [Suspect]
     Active Substance: LENALIDOMIDE
     Indication: Plasma cell myeloma
     Route: 065
     Dates: start: 20150826, end: 201810

REACTIONS (15)
  - Polyneuropathy [Not Recovered/Not Resolved]
  - Hypothyroidism [Unknown]
  - Cholecystitis acute [Unknown]
  - Pneumonia [Unknown]
  - Ilium fracture [Unknown]
  - Ankle fracture [Unknown]
  - Foot fracture [Unknown]
  - Gastrointestinal tract adenoma [Unknown]
  - Medical device site thrombosis [Unknown]
  - Urinary tract infection [Unknown]
  - Diarrhoea [Recovered/Resolved]
  - Osteoarthritis [Unknown]
  - Oesophageal achalasia [Unknown]
  - Vertigo [Not Recovered/Not Resolved]
  - Nausea [Recovered/Resolved]

NARRATIVE: CASE EVENT DATE: 20160601
